FAERS Safety Report 23830714 (Version 1)
Quarter: 2024Q2

REPORT INFORMATION
  Report Type: Spontaneous
  Country: CA (occurrence: CA)
  Receive Date: 20240508
  Receipt Date: 20240508
  Transmission Date: 20240716
  Serious: Yes (Hospitalization, Other)
  Sender: FDA-Public Use
  Company Number: CA-AUROBINDO-AUR-APL-2024-021631

PATIENT
  Age: 67 Year
  Sex: Female
  Weight: 72 kg

DRUGS (15)
  1. NITROFURANTOIN [Suspect]
     Active Substance: NITROFURANTOIN
     Indication: Chromaturia
     Dosage: 50 MILLIGRAM, ONCE A DAY
     Route: 065
  2. NITROFURANTOIN [Suspect]
     Active Substance: NITROFURANTOIN
     Indication: Blood urine present
     Dosage: 100 MILLIGRAM, TWO TIMES A DAY
     Route: 065
  3. TEGSEDI [Suspect]
     Active Substance: INOTERSEN SODIUM
     Indication: Polyneuropathy
     Dosage: 284 MILLIGRAM, EVERY WEEK
     Route: 058
  4. TEGSEDI [Suspect]
     Active Substance: INOTERSEN SODIUM
     Indication: Hereditary neuropathic amyloidosis
  5. ALVESCO [Concomitant]
     Active Substance: CICLESONIDE
     Indication: Product used for unknown indication
     Dosage: UNK
     Route: 065
  6. CLARITHROMYCIN [Concomitant]
     Active Substance: CLARITHROMYCIN
     Indication: Product used for unknown indication
     Dosage: UNK
     Route: 065
  7. CYMBALTA [Concomitant]
     Active Substance: DULOXETINE HYDROCHLORIDE
     Indication: Product used for unknown indication
     Dosage: UNK
     Route: 065
  8. LORAZEPAM [Concomitant]
     Active Substance: LORAZEPAM
     Indication: Product used for unknown indication
     Dosage: UNK
     Route: 065
  9. LYRICA [Concomitant]
     Active Substance: PREGABALIN
     Indication: Product used for unknown indication
     Dosage: UNK
     Route: 065
  10. PANTOPRAZOLE [Concomitant]
     Active Substance: PANTOPRAZOLE
     Indication: Product used for unknown indication
     Dosage: UNK
     Route: 065
  11. PREGABALIN [Concomitant]
     Active Substance: PREGABALIN
     Indication: Product used for unknown indication
     Dosage: UNK
     Route: 065
  12. SYNTHROID [Concomitant]
     Active Substance: LEVOTHYROXINE SODIUM
     Indication: Product used for unknown indication
     Dosage: UNK
     Route: 065
  13. TUMS [Concomitant]
     Active Substance: CALCIUM CARBONATE
     Indication: Product used for unknown indication
     Dosage: UNK
     Route: 065
  14. TYLENOL [Concomitant]
     Active Substance: ACETAMINOPHEN
     Indication: Product used for unknown indication
     Dosage: UNK
     Route: 065
  15. VITAMIN A [Concomitant]
     Active Substance: VITAMIN A
     Indication: Product used for unknown indication
     Dosage: UNK
     Route: 065

REACTIONS (38)
  - Abdominal discomfort [Unknown]
  - Aspartate aminotransferase increased [Unknown]
  - Autoimmune haemolytic anaemia [Unknown]
  - Blood bilirubin increased [Unknown]
  - Blood pressure decreased [Unknown]
  - Choking [Unknown]
  - Cholelithiasis [Unknown]
  - Contrast media reaction [Unknown]
  - Cough [Unknown]
  - Decreased appetite [Unknown]
  - Depressed mood [Unknown]
  - Dry skin [Unknown]
  - Dyspepsia [Unknown]
  - Dyspnoea [Unknown]
  - Emotional disorder [Unknown]
  - Fatigue [Unknown]
  - Feeling abnormal [Unknown]
  - Food refusal [Unknown]
  - Gallbladder disorder [Unknown]
  - Gastrointestinal pain [Unknown]
  - Gastrointestinal disorder [Unknown]
  - Haemoglobin decreased [Unknown]
  - Haemolysis [Unknown]
  - Hepatic enzyme increased [Unknown]
  - Hypogeusia [Unknown]
  - Illness [Unknown]
  - Insomnia [Unknown]
  - Jaundice [Unknown]
  - Malaise [Unknown]
  - Mental disorder [Unknown]
  - Nausea [Unknown]
  - Neuropathy peripheral [Unknown]
  - Ocular icterus [Unknown]
  - Pain [Unknown]
  - Pallor [Unknown]
  - Pruritus [Unknown]
  - Urinary tract infection [Unknown]
  - Urticaria [Unknown]
